FAERS Safety Report 25254108 (Version 2)
Quarter: 2025Q2

REPORT INFORMATION
  Report Type: Spontaneous
  Country: US (occurrence: US)
  Receive Date: 20250430
  Receipt Date: 20250531
  Transmission Date: 20250717
  Serious: No
  Sender: DIFGEN PHARMACEUTICALS LLC
  Company Number: US-Difgen-011991

PATIENT
  Sex: Male

DRUGS (1)
  1. BUPRENORPHINE [Suspect]
     Active Substance: BUPRENORPHINE
     Indication: Neuralgia
     Dosage: 20 MCG/HR PATCH
     Route: 062

REACTIONS (6)
  - Application site bruise [Unknown]
  - Drug ineffective [Unknown]
  - Product substitution issue [Unknown]
  - Product adhesion issue [Unknown]
  - Application site burn [Unknown]
  - Application site irritation [Unknown]
